FAERS Safety Report 20578144 (Version 3)
Quarter: 2024Q3

REPORT INFORMATION
  Report Type: Report from Study
  Country: FR (occurrence: FR)
  Receive Date: 20220310
  Receipt Date: 20240905
  Transmission Date: 20241017
  Serious: Yes (Hospitalization, Other)
  Sender: SERVIER
  Company Number: FR-SERVIER-S22002378

PATIENT

DRUGS (9)
  1. PEGASPARGASE [Suspect]
     Active Substance: PEGASPARGASE
     Indication: Acute lymphocytic leukaemia
     Dosage: 1525 IU, D6
     Route: 042
     Dates: start: 20200615
  2. DEXAMETHASONE [Suspect]
     Active Substance: DEXAMETHASONE
     Indication: Acute lymphocytic leukaemia
     Dosage: 12.2 MG, D1 TO D5
     Route: 048
     Dates: start: 20200609, end: 20200613
  3. DEXAMETHASONE [Suspect]
     Active Substance: DEXAMETHASONE
     Dosage: 6.1 MG, D6
     Route: 048
     Dates: start: 20200614, end: 20200614
  4. CYTARABINE [Suspect]
     Active Substance: CYTARABINE
     Indication: Acute lymphocytic leukaemia
     Dosage: 1220 MG, D1 AND D2
     Route: 042
     Dates: start: 20200609, end: 20200610
  5. CYTARABINE [Suspect]
     Active Substance: CYTARABINE
     Dosage: 30 MG, D5
     Route: 037
     Dates: start: 20200613, end: 20200613
  6. ETOPOSIDE [Suspect]
     Active Substance: ETOPOSIDE
     Indication: Acute lymphocytic leukaemia
     Dosage: 91.5 MG, D3 AND D5
     Route: 042
     Dates: start: 20200611, end: 20200613
  7. MITOXANTRONE [Suspect]
     Active Substance: MITOXANTRONE HYDROCHLORIDE
     Indication: Acute lymphocytic leukaemia
     Dosage: 4.9 MG, D3, D4
     Route: 042
     Dates: start: 20200611, end: 20200612
  8. METHOTREXATE [Suspect]
     Active Substance: METHOTREXATE
     Indication: Acute lymphocytic leukaemia
     Dosage: 12 MG, ON D5
     Route: 037
     Dates: start: 20200613, end: 20200613
  9. HYDROCORTISONE [Suspect]
     Active Substance: HYDROCORTISONE\HYDROCORTISONE ACETATE
     Indication: Acute lymphocytic leukaemia
     Dosage: 15 MG, D5
     Route: 037
     Dates: start: 20200613, end: 20200613

REACTIONS (2)
  - Febrile bone marrow aplasia [Recovered/Resolved]
  - Respiratory tract infection fungal [Recovered/Resolved]

NARRATIVE: CASE EVENT DATE: 20200618
